FAERS Safety Report 15430231 (Version 1)
Quarter: 2018Q4

REPORT INFORMATION
  Report Type: Spontaneous
  Country: US (occurrence: US)
  Receive Date: 20180926
  Receipt Date: 20180926
  Transmission Date: 20190204
  Serious: No
  Sender: FDA-Public Use
  Company Number: US-ASSERTIO THERAPEUTICS, INC.-US-2017DEP002477

PATIENT

DRUGS (1)
  1. GRALISE [Suspect]
     Active Substance: GABAPENTIN
     Indication: PRODUCT USED FOR UNKNOWN INDICATION
     Dosage: 300 MG, QD,(1 TABLET WITH EVENING MEAL, INCREASE ONE TABLET EVERY TWO DAYS UPTO THREE TABLETS DAILY)
     Route: 048
     Dates: start: 20171012

REACTIONS (5)
  - Vertigo [Unknown]
  - Fall [Unknown]
  - Sinusitis [Unknown]
  - Drug titration error [Not Recovered/Not Resolved]
  - Contusion [Unknown]

NARRATIVE: CASE EVENT DATE: 201710
